FAERS Safety Report 5184455-3 (Version None)
Quarter: 2006Q4

REPORT INFORMATION
  Report Type: 
  Country: None (occurrence: None)
  Receive Date: 20061220
  Receipt Date: 20060411
  Transmission Date: 20070319
  Serious: No
  Sender: FDA-Public Use
  Company Number: US-GLAXOSMITHKLINE-A0601321A

PATIENT
  Age: 29 Year
  Sex: Male

DRUGS (4)
  1. NICODERM CQ [Suspect]
     Dates: end: 20060407
  2. OXYCODONE HCL [Concomitant]
  3. HYDROCODONE BITARTRATE [Concomitant]
  4. LUNESTA [Concomitant]

REACTIONS (7)
  - APPLICATION SITE ERYTHEMA [None]
  - APPLICATION SITE IRRITATION [None]
  - APPLICATION SITE PAPULES [None]
  - APPLICATION SITE REACTION [None]
  - FEELING JITTERY [None]
  - HYPERSENSITIVITY [None]
  - TREMOR [None]
